FAERS Safety Report 18449958 (Version 1)
Quarter: 2020Q4

REPORT INFORMATION
  Report Type: Spontaneous
  Country: US (occurrence: US)
  Receive Date: 20201031
  Receipt Date: 20201031
  Transmission Date: 20210114
  Serious: Yes (Other)
  Sender: FDA-Public Use
  Company Number: US-NAPPMUNDI-USA-2020-0153700

PATIENT
  Sex: Male

DRUGS (1)
  1. OXYCONTIN [Suspect]
     Active Substance: OXYCODONE HYDROCHLORIDE
     Indication: WISDOM TEETH REMOVAL
     Dosage: UNK
     Route: 048

REACTIONS (7)
  - Panic attack [Unknown]
  - Overdose [Unknown]
  - Seizure [Unknown]
  - Drug dependence [Unknown]
  - Learning disability [Unknown]
  - Vomiting [Unknown]
  - Cardiac disorder [Unknown]
